FAERS Safety Report 4499051-0 (Version None)
Quarter: 2004Q4

REPORT INFORMATION
  Report Type: 
  Country: None (occurrence: None)
  Receive Date: 20041110
  Receipt Date: 20041110
  Transmission Date: 20050328
  Serious: Yes (Life-Threatening, Hospitalization)
  Sender: FDA-Public Use
  Company Number: None

PATIENT
  Age: 56 Year
  Sex: Female

DRUGS (2)
  1. ROCEPHIN [Suspect]
  2. LEVAQUIN [Suspect]

REACTIONS (1)
  - STEVENS-JOHNSON SYNDROME [None]
